FAERS Safety Report 12364055 (Version 8)
Quarter: 2017Q1

REPORT INFORMATION
  Report Type: Report from Study
  Country: BR (occurrence: BR)
  Receive Date: 20160512
  Receipt Date: 20170322
  Transmission Date: 20170428
  Serious: Yes (Hospitalization)
  Sender: FDA-Public Use
  Company Number: PHHY2015BR063029

PATIENT
  Sex: Female
  Weight: 51 kg

DRUGS (9)
  1. EXJADE [Suspect]
     Active Substance: DEFERASIROX
     Dosage: 2000 MG, QD
     Route: 048
  2. EXJADE [Suspect]
     Active Substance: DEFERASIROX
     Dosage: 20 MG/KG, QD (4 DF OF 250 MG WITH WATER 30 MINUTES BEFORE LUNCH)
     Route: 048
  3. ENALAPRIL [Concomitant]
     Active Substance: ENALAPRIL
     Indication: HYPERTENSION
     Dosage: 1 DF, QD
     Route: 048
  4. FOLIC ACID. [Concomitant]
     Active Substance: FOLIC ACID
     Indication: SICKLE CELL ANAEMIA
     Dosage: 1 DF, QD
     Route: 048
  5. HYDROCHLOROTHIAZIDE. [Concomitant]
     Active Substance: HYDROCHLOROTHIAZIDE
     Indication: HYPERTENSION
     Dosage: 1 DF, QD
     Route: 048
  6. ALLOPURINOL. [Concomitant]
     Active Substance: ALLOPURINOL
     Indication: BLOOD URIC ACID ABNORMAL
     Dosage: 1 DF, QD
     Route: 048
  7. EXJADE [Suspect]
     Active Substance: DEFERASIROX
     Indication: SICKLE CELL ANAEMIA
     Dosage: 40 MG/KG (4 DF OF 500 MG), QD
     Route: 048
  8. EXJADE [Suspect]
     Active Substance: DEFERASIROX
     Dosage: 2000 MG, BID (TWICE A DAY)
     Route: 048
  9. EXJADE [Suspect]
     Active Substance: DEFERASIROX
     Dosage: 30 MG/KG, QD (3 DF OF 500 MG)
     Route: 048

REACTIONS (18)
  - Abdominal discomfort [Unknown]
  - Expired product administered [Unknown]
  - Dizziness [Not Recovered/Not Resolved]
  - Drug intolerance [Unknown]
  - Dysphonia [Unknown]
  - Fatigue [Unknown]
  - Cholecystitis [Recovering/Resolving]
  - Biliary colic [Unknown]
  - Back pain [Unknown]
  - Weight decreased [Unknown]
  - Skin discolouration [Unknown]
  - Malaise [Unknown]
  - Diarrhoea [Unknown]
  - Nausea [Unknown]
  - Pharyngitis [Unknown]
  - Oropharyngeal pain [Unknown]
  - Dysphagia [Unknown]
  - Vomiting [Unknown]
